FAERS Safety Report 12724341 (Version 1)
Quarter: 2016Q3

REPORT INFORMATION
  Report Type: Spontaneous
  Country: AR (occurrence: AR)
  Receive Date: 20160908
  Receipt Date: 20160908
  Transmission Date: 20161109
  Serious: Yes (Other)
  Sender: FDA-Public Use
  Company Number: AR-PFIZER INC-2016410408

PATIENT
  Age: 66 Year
  Sex: Male

DRUGS (2)
  1. SUTENT [Suspect]
     Active Substance: SUNITINIB MALATE
     Dosage: UNK, CYCLIC, (SCHEME ALTERNATE DATES/2)
  2. SUTENT [Suspect]
     Active Substance: SUNITINIB MALATE
     Indication: METASTATIC RENAL CELL CARCINOMA
     Dosage: UNK, CYCLIC (4/2 SCHEME) EVERY 28 DAYS
     Dates: start: 20160118

REACTIONS (4)
  - Abasia [Recovered/Resolved]
  - Pain in extremity [Recovered/Resolved]
  - Gastric disorder [Unknown]
  - Diarrhoea [Unknown]

NARRATIVE: CASE EVENT DATE: 201602
